FAERS Safety Report 17954584 (Version 1)
Quarter: 2020Q2

REPORT INFORMATION
  Report Type: Report from Study
  Country: US (occurrence: US)
  Receive Date: 20200629
  Receipt Date: 20200629
  Transmission Date: 20200714
  Serious: Yes (Death)
  Sender: FDA-Public Use
  Company Number: US-UCBSA-2020025100

PATIENT
  Age: 59 Year
  Sex: Male

DRUGS (1)
  1. BRIVARACETAM [Suspect]
     Active Substance: BRIVARACETAM
     Indication: SEIZURE
     Dosage: 100 MILLIGRAM, 2X/DAY (BID)
     Dates: end: 20200614

REACTIONS (2)
  - Seizure [Fatal]
  - Aspiration [Fatal]

NARRATIVE: CASE EVENT DATE: 20200614
